FAERS Safety Report 5480976-4 (Version None)
Quarter: 2007Q4

REPORT INFORMATION
  Report Type: 
  Country: None (occurrence: None)
  Receive Date: 20071004
  Receipt Date: 20070924
  Transmission Date: 20080405
  Serious: Yes (Hospitalization)
  Sender: FDA-Public Use
  Company Number: 2007AL003981

PATIENT
  Age: 53 Year
  Sex: Female

DRUGS (2)
  1. BETAMETHASONE DIPROPIONATE [Suspect]
     Indication: ROSACEA
     Dosage: QD
  2. CLOBETASOL PROPIONATE [Suspect]
     Indication: ROSACEA
     Dosage: QD; TOP
     Route: 061

REACTIONS (2)
  - CONDITION AGGRAVATED [None]
  - ROSACEA [None]
